FAERS Safety Report 10170601 (Version 2)
Quarter: 2014Q2

REPORT INFORMATION
  Report Type: Spontaneous
  Country: US (occurrence: US)
  Receive Date: 20140513
  Receipt Date: 20140526
  Transmission Date: 20141212
  Serious: Yes (Death)
  Sender: FDA-Public Use
  Company Number: US-ROCHE-1400668

PATIENT
  Age: 76 Year
  Sex: Female

DRUGS (3)
  1. XELODA [Suspect]
     Indication: PANCREATIC CARCINOMA STAGE II
     Dosage: 2 WEEKS ON AND 1 WEEK OFF
     Route: 048
  2. XELODA [Suspect]
     Dosage: 2 WEEKS ON AND 1 WEEK OFF
     Route: 048
  3. XELODA [Suspect]
     Dosage: DOSE REDUCED
     Route: 048

REACTIONS (4)
  - Pulmonary embolism [Fatal]
  - Pancreatic carcinoma [Fatal]
  - Palmar-plantar erythrodysaesthesia syndrome [Unknown]
  - Diarrhoea [Unknown]
